FAERS Safety Report 23122592 (Version 1)
Quarter: 2023Q4

REPORT INFORMATION
  Report Type: Report from Study
  Country: JP (occurrence: JP)
  Receive Date: 20231030
  Receipt Date: 20231030
  Transmission Date: 20240110
  Serious: Yes (Other)
  Sender: FDA-Public Use
  Company Number: JP-TAKEDA-2023TJP013710

PATIENT
  Age: 74 Year
  Sex: Female
  Weight: 57 kg

DRUGS (2)
  1. PANITUMUMAB [Suspect]
     Active Substance: PANITUMUMAB
     Indication: Adenocarcinoma of colon
     Dosage: 340 MILLIGRAM
     Route: 065
     Dates: start: 20201217, end: 20210201
  2. IRINOTECAN [Suspect]
     Active Substance: IRINOTECAN
     Indication: Adenocarcinoma of colon
     Dosage: 150 MILLIGRAM
     Route: 065
     Dates: start: 20201217, end: 20210201

REACTIONS (8)
  - Blood sodium decreased [Unknown]
  - Blood albumin decreased [Unknown]
  - Adjusted calcium decreased [Unknown]
  - Malaise [Unknown]
  - Blood potassium increased [Unknown]
  - Palmar-plantar erythrodysaesthesia syndrome [Unknown]
  - Dry skin [Unknown]
  - Decreased appetite [Unknown]
